FAERS Safety Report 4345139-4 (Version None)
Quarter: 2004Q2

REPORT INFORMATION
  Report Type: 
  Country: None (occurrence: None)
  Receive Date: 20040423
  Receipt Date: 20040406
  Transmission Date: 20050107
  Serious: Yes (Hospitalization, Other)
  Sender: FDA-Public Use
  Company Number: JP-MERCK-0404USA01148

PATIENT
  Age: 15 Week
  Sex: Female

DRUGS (4)
  1. [THERAPY UNSPECIFIED] [Concomitant]
     Route: 048
     Dates: start: 20040311
  2. PEPCID [Suspect]
     Indication: GASTRIC MUCOSAL LESION
     Route: 048
     Dates: start: 20040229, end: 20040310
  3. PEPCID [Suspect]
     Indication: UPPER GASTROINTESTINAL HAEMORRHAGE
     Route: 048
     Dates: start: 20040229, end: 20040310
  4. PEPCID [Suspect]
     Route: 042
     Dates: start: 20040311, end: 20040322

REACTIONS (4)
  - ANAEMIA [None]
  - HAEMORRHAGE [None]
  - SHOCK [None]
  - THROMBOCYTOPENIA [None]
